FAERS Safety Report 5803286-1 (Version None)
Quarter: 2008Q3

REPORT INFORMATION
  Report Type: 
  Country: None (occurrence: None)
  Receive Date: 20080708
  Receipt Date: 20080704
  Transmission Date: 20090109
  Serious: Yes (Hospitalization)
  Sender: FDA-Public Use
  Company Number: A0736305A

PATIENT
  Age: 79 Year
  Sex: Male

DRUGS (3)
  1. AROPAX [Suspect]
     Indication: DRUG USE FOR UNKNOWN INDICATION
     Dosage: 20MG PER DAY
     Route: 048
     Dates: start: 20080501
  2. PIRACETAM [Concomitant]
  3. NEURONTIN [Concomitant]

REACTIONS (4)
  - ADVERSE EVENT [None]
  - DEPRESSION [None]
  - PARAESTHESIA ORAL [None]
  - VERTIGO [None]
